FAERS Safety Report 4816689-9 (Version None)
Quarter: 2005Q4

REPORT INFORMATION
  Report Type: 
  Country: None (occurrence: None)
  Receive Date: 20051028
  Receipt Date: 20051021
  Transmission Date: 20060501
  Serious: Yes (Other)
  Sender: FDA-Public Use
  Company Number: 163-20785-05090383

PATIENT
  Age: 60 Year
  Sex: Female

DRUGS (3)
  1. THALOMID [Suspect]
     Indication: MULTIPLE MYELOMA
     Dosage: 50MG THREE TIMES A WEEK, ORAL
     Route: 048
     Dates: start: 20040628
  2. THALOMID [Suspect]
     Indication: MULTIPLE MYELOMA
     Dosage: 50MG THREE TIMES A WEEK, ORAL
     Route: 048
     Dates: start: 20050501
  3. DEXAMETHASONE [Concomitant]

REACTIONS (3)
  - EYE DISORDER [None]
  - NERVE INJURY [None]
  - VISUAL DISTURBANCE [None]
